FAERS Safety Report 5848125-8 (Version None)
Quarter: 2008Q3

REPORT INFORMATION
  Report Type: 
  Country: None (occurrence: None)
  Receive Date: 20080818
  Receipt Date: 20080811
  Transmission Date: 20090109
  Serious: Yes (Hospitalization, Other)
  Sender: FDA-Public Use
  Company Number: US-BAYER-200812396BCC

PATIENT
  Age: 79 Year
  Sex: Female
  Weight: 81 kg

DRUGS (13)
  1. SALICYLATES [Suspect]
     Indication: DRUG USE FOR UNKNOWN INDICATION
     Route: 048
     Dates: start: 20070910, end: 20071115
  2. EXEMESTANE [Suspect]
     Indication: BREAST CANCER
     Dosage: TOTAL DAILY DOSE: 2.5 MG  UNIT DOSE: 2.5 MG
     Route: 048
     Dates: start: 20070815, end: 20080225
  3. COUMADIN [Suspect]
     Indication: DRUG USE FOR UNKNOWN INDICATION
     Route: 048
     Dates: start: 20030804, end: 20070910
  4. ALEVE [Suspect]
     Indication: OSTEOARTHRITIS
     Route: 048
     Dates: end: 20070901
  5. LOPID [Concomitant]
     Route: 048
  6. LASIX [Concomitant]
     Route: 048
  7. POTASSIUM CHLORIDE [Concomitant]
     Route: 048
     Dates: start: 19860101
  8. TOPROL-XL [Concomitant]
     Route: 048
     Dates: start: 20030408
  9. LIPITOR [Concomitant]
     Route: 048
     Dates: start: 20030408
  10. ACEON [Concomitant]
     Route: 048
     Dates: start: 20060207
  11. TRAZODONE HCL [Concomitant]
     Route: 048
     Dates: start: 20000101
  12. DARVOCET [Concomitant]
     Indication: OSTEOARTHRITIS
  13. TYLENOL [Concomitant]
     Indication: OSTEOARTHRITIS

REACTIONS (5)
  - GASTRIC ULCER [None]
  - GASTROINTESTINAL HAEMORRHAGE [None]
  - HAEMOGLOBIN DECREASED [None]
  - INTERNATIONAL NORMALISED RATIO INCREASED [None]
  - MELAENA [None]
